FAERS Safety Report 7458006-4 (Version None)
Quarter: 2011Q1

REPORT INFORMATION
  Report Type: 
  Country: None (occurrence: None)
  Receive Date: 20110302
  Receipt Date: 20100907
  Transmission Date: 20110831
  Serious: Yes (Hospitalization, Other)
  Sender: FDA-Public Use
  Company Number: 163-21880-10061866

PATIENT
  Age: 67 Year
  Sex: Male

DRUGS (2)
  1. REVLIMID [Suspect]
     Indication: MYELODYSPLASTIC SYNDROME
     Dosage: 10 MG, QD X 21 DAYS, PO
     Route: 048
     Dates: start: 20090401, end: 20100616
  2. STEROIDS (CORTICOSTEROIDS) [Concomitant]

REACTIONS (8)
  - DEEP VEIN THROMBOSIS [None]
  - URINE OUTPUT INCREASED [None]
  - THIRST [None]
  - LETHARGY [None]
  - DIABETES MELLITUS [None]
  - SPLENOMEGALY [None]
  - BLOOD GLUCOSE INCREASED [None]
  - PULMONARY EMBOLISM [None]
